FAERS Safety Report 24574490 (Version 1)
Quarter: 2024Q4

REPORT INFORMATION
  Report Type: Report from Study
  Country: GB (occurrence: GB)
  Receive Date: 20241104
  Receipt Date: 20241104
  Transmission Date: 20250114
  Serious: Yes (Other)
  Sender: ROCHE
  Company Number: GB-ROCHE-3339356

PATIENT
  Age: 49 Year
  Sex: Female

DRUGS (3)
  1. OCREVUS [Suspect]
     Active Substance: OCRELIZUMAB
     Indication: Relapsing-remitting multiple sclerosis
     Route: 041
     Dates: start: 20230425
  2. OCREVUS [Suspect]
     Active Substance: OCRELIZUMAB
     Indication: Primary progressive multiple sclerosis
     Dosage: SECOND INDUCTION DOSE
     Route: 041
  3. OCREVUS [Suspect]
     Active Substance: OCRELIZUMAB
     Dosage: SECOND INDUCTION DOSE
     Route: 041

REACTIONS (5)
  - Pruritus [Recovering/Resolving]
  - Rash macular [Recovered/Resolved]
  - Fatigue [Recovered/Resolved]
  - Breast abscess [Recovered/Resolved]
  - Infected cyst [Recovered/Resolved]

NARRATIVE: CASE EVENT DATE: 20230425
